FAERS Safety Report 6330269-8 (Version None)
Quarter: 2009Q3

REPORT INFORMATION
  Report Type: 
  Country: None (occurrence: None)
  Receive Date: 20090827
  Receipt Date: 20090514
  Transmission Date: 20100115
  Serious: No
  Sender: FDA-Public Use
  Company Number: US-KINGPHARMUSA00001-K200900597

PATIENT
  Sex: Female
  Weight: 77.098 kg

DRUGS (3)
  1. FLECTOR [Suspect]
     Indication: ARTHRALGIA
     Dosage: 1 PATCH, QHS
     Route: 061
     Dates: start: 20090416, end: 20090401
  2. ALLEGRA [Concomitant]
     Indication: HYPERSENSITIVITY
     Dosage: 180 MG, QD
     Route: 048
  3. SINGULAIR [Concomitant]
     Dosage: 10 MG, QPM
     Route: 048

REACTIONS (4)
  - FATIGUE [None]
  - FLUSHING [None]
  - SOMNOLENCE [None]
  - SWELLING FACE [None]
